FAERS Safety Report 16643165 (Version 2)
Quarter: 2019Q3

REPORT INFORMATION
  Report Type: Spontaneous
  Country: AU (occurrence: AU)
  Receive Date: 20190729
  Receipt Date: 20190925
  Transmission Date: 20191004
  Serious: Yes (Hospitalization, Other)
  Sender: FDA-Public Use
  Company Number: AU-AMERICAN REGENT INC-20191525

PATIENT
  Age: 64 Year
  Sex: Female
  Weight: 77 kg

DRUGS (1)
  1. FERINJECT [Suspect]
     Active Substance: FERRIC CARBOXYMALTOSE
     Indication: IRON DEFICIENCY
     Dosage: STAT DOSE 1000 MILLIGRAM
     Dates: start: 20190708, end: 20190708

REACTIONS (12)
  - Enterococcal infection [Recovering/Resolving]
  - Acute respiratory distress syndrome [Recovering/Resolving]
  - Septic shock [Recovering/Resolving]
  - Hypophosphataemia [Recovering/Resolving]
  - Diarrhoea [Recovering/Resolving]
  - Product contamination microbial [Recovering/Resolving]
  - Suspected product quality issue [Unknown]
  - Infected skin ulcer [Recovering/Resolving]
  - Acinetobacter infection [Recovering/Resolving]
  - Device related infection [Recovering/Resolving]
  - Skin ulcer [Recovering/Resolving]
  - Iron overload [Recovering/Resolving]

NARRATIVE: CASE EVENT DATE: 201907
